FAERS Safety Report 5659613-1 (Version None)
Quarter: 2008Q1

REPORT INFORMATION
  Report Type: 
  Country: None (occurrence: None)
  Receive Date: 20080311
  Receipt Date: 20080311
  Transmission Date: 20080703
  Serious: No
  Sender: FDA-Public Use
  Company Number: None

PATIENT
  Age: 72 Year
  Sex: Female

DRUGS (2)
  1. HEPARIN [Suspect]
     Indication: ANTICOAGULANT THERAPY
     Dosage: 12,000 UNITS WITH HEMODIALYSIS HEMODIALYSIS
     Route: 010
     Dates: start: 20011212, end: 20080310
  2. HEPARIN [Suspect]
     Indication: HAEMODIALYSIS
     Dosage: 12,000 UNITS WITH HEMODIALYSIS HEMODIALYSIS
     Route: 010
     Dates: start: 20011212, end: 20080310

REACTIONS (4)
  - DYSPNOEA [None]
  - NAUSEA [None]
  - PARAESTHESIA [None]
  - PARAESTHESIA ORAL [None]
